FAERS Safety Report 11440901 (Version 1)
Quarter: 2015Q3

REPORT INFORMATION
  Report Type: Spontaneous
  Country: US (occurrence: US)
  Receive Date: 20150901
  Receipt Date: 20150901
  Transmission Date: 20151125
  Serious: No
  Sender: FDA-Public Use
  Company Number: US-ROCHE-1055482

PATIENT
  Sex: Female

DRUGS (4)
  1. PEGASYS [Suspect]
     Active Substance: PEGINTERFERON ALFA-2A
     Indication: CHRONIC HEPATITIS C
     Route: 058
     Dates: start: 20120315
  2. INCIVEK [Suspect]
     Active Substance: TELAPREVIR
     Indication: CHRONIC HEPATITIS C
     Route: 065
     Dates: start: 20120315
  3. RIBASPHERE [Suspect]
     Active Substance: RIBAVIRIN
     Indication: CHRONIC HEPATITIS C
     Route: 048
     Dates: start: 20120315
  4. RIBASPHERE [Suspect]
     Active Substance: RIBAVIRIN
     Dosage: IN AM
     Route: 065
     Dates: start: 20120425

REACTIONS (6)
  - Rash [Unknown]
  - Dyspnoea exertional [Unknown]
  - Fatigue [Unknown]
  - Anaemia [Unknown]
  - Abdominal pain [Unknown]
  - Dyspnoea [Unknown]
